FAERS Safety Report 5199927-5 (Version None)
Quarter: 2007Q1

REPORT INFORMATION
  Report Type: 
  Country: None (occurrence: None)
  Receive Date: 20070103
  Receipt Date: 20061219
  Transmission Date: 20070707
  Serious: Yes (Hospitalization)
  Sender: FDA-Public Use
  Company Number: 2006RL000139

PATIENT
  Age: 88 Year
  Sex: Female
  Weight: 76.6579 kg

DRUGS (12)
  1. RYTHMOL [Suspect]
     Indication: ATRIAL FIBRILLATION
     Dosage: 225 MG; TID; PO
     Route: 048
     Dates: start: 20060406, end: 20060412
  2. DIGOXIN [Suspect]
     Indication: ATRIAL FIBRILLATION
     Dosage: 0.125 MG; QD; PO
     Route: 048
     Dates: start: 20051227, end: 20060406
  3. ATENOLOL [Suspect]
     Indication: HYPERTENSION
     Dosage: 50 MG; QD; PO
     Route: 048
     Dates: start: 20051222
  4. ATENOLOL [Suspect]
     Indication: HYPERTENSION
     Dosage: 50 MG; QD; PO
     Route: 048
     Dates: start: 20060401
  5. TIMOLOL MALEATE [Suspect]
     Dosage: 0.5 GTT; BID; OPH
     Route: 047
     Dates: start: 20011101
  6. TIMOLOL MALEATE [Suspect]
     Dosage: 0.5 GTT; BID; OPH
     Route: 047
     Dates: start: 20060401
  7. WARFARIN SODIUM [Concomitant]
  8. ASPIRIN [Concomitant]
  9. KLOR-CON [Concomitant]
  10. LASIX [Concomitant]
  11. SPIRIVA [Concomitant]
  12. LASIX [Concomitant]

REACTIONS (16)
  - ATRIAL FIBRILLATION [None]
  - ATRIOVENTRICULAR BLOCK COMPLETE [None]
  - BLOOD PRESSURE IMMEASURABLE [None]
  - BRADYCARDIA [None]
  - BREATH SOUNDS ABNORMAL [None]
  - CARDIAC MURMUR [None]
  - DRUG EFFECT DECREASED [None]
  - DRUG INTERACTION [None]
  - FALL [None]
  - HYPOTHYROIDISM [None]
  - INAPPROPRIATE ANTIDIURETIC HORMONE SECRETION [None]
  - INTERNATIONAL NORMALISED RATIO INCREASED [None]
  - NODAL RHYTHM [None]
  - PITTING OEDEMA [None]
  - PROTHROMBIN TIME PROLONGED [None]
  - SICK SINUS SYNDROME [None]
